FAERS Safety Report 14155112 (Version 2)
Quarter: 2017Q4

REPORT INFORMATION
  Report Type: Spontaneous
  Country: AU (occurrence: AU)
  Receive Date: 20171103
  Receipt Date: 20171211
  Transmission Date: 20180321
  Serious: Yes (Life-Threatening, Other)
  Sender: FDA-Public Use
  Company Number: AU-CONCORDIA PHARMACEUTICALS INC.-E2B_00008464

PATIENT
  Age: 62 Year
  Sex: Male

DRUGS (7)
  1. CYCLOPHOSPHAMIDE. [Suspect]
     Active Substance: CYCLOPHOSPHAMIDE
     Indication: CASTLEMAN^S DISEASE
     Dosage: CYCLE LENGTH: 21 DAYS
  2. PREDNISOLONE. [Suspect]
     Active Substance: PREDNISOLONE
     Dosage: D1-5 (CYCLE LENGTH 21 DAYS)
  3. VINCRISTINE [Suspect]
     Active Substance: VINCRISTINE
     Dosage: D1; DOSE CAPPED AT 2 MG(CYCLE LENGTH: 21 DAYS)
  4. CYCLOPHOSPHAMIDE. [Suspect]
     Active Substance: CYCLOPHOSPHAMIDE
     Dosage: D1 (CYCLE LENGTH: 21 DAYS)
  5. ETOPOSIDE. [Suspect]
     Active Substance: ETOPOSIDE
     Indication: CASTLEMAN^S DISEASE
     Dosage: CYCLE LENGTH: 21 DAYS
  6. VINCRISTINE [Suspect]
     Active Substance: VINCRISTINE
     Indication: CASTLEMAN^S DISEASE
     Dosage: D1; DOSE CAPPED AT 2 MG(CYCLE LENGTH: 21 DAYS)
  7. PREDNISOLONE. [Suspect]
     Active Substance: PREDNISOLONE
     Indication: CASTLEMAN^S DISEASE
     Dosage: D1-5 (CYCLE LENGTH 21 DAYS)

REACTIONS (2)
  - Pneumonia [Unknown]
  - Drug effect incomplete [Unknown]
